FAERS Safety Report 6098005-0 (Version None)
Quarter: 2009Q1

REPORT INFORMATION
  Report Type: 
  Country: None (occurrence: None)
  Receive Date: 20090227
  Receipt Date: 20090223
  Transmission Date: 20090719
  Serious: Yes (Other)
  Sender: FDA-Public Use
  Company Number: US-ELI_LILLY_AND_COMPANY-US200902006007

PATIENT
  Sex: Male

DRUGS (8)
  1. HUMULIN 70/30 [Suspect]
     Dosage: 30 U, DAILY (1/D)
     Dates: start: 20010101
  2. HUMULIN 70/30 [Suspect]
     Dosage: 30 U, DAILY (1/D)
  3. HUMULIN 70/30 [Suspect]
     Dosage: 30 U, DAILY (1/D)
  4. BARACLUDE [Concomitant]
  5. TUMS [Concomitant]
     Indication: MINERAL SUPPLEMENTATION
  6. VITAMINS [Concomitant]
  7. ACTOS [Concomitant]
  8. NOVOLIN R [Concomitant]
     Dosage: UNK, AS NEEDED

REACTIONS (9)
  - ARTHRALGIA [None]
  - BLOOD GLUCOSE FLUCTUATION [None]
  - BLOOD GLUCOSE INCREASED [None]
  - DRUG INEFFECTIVE [None]
  - FLATULENCE [None]
  - MALAISE [None]
  - NERVOUSNESS [None]
  - PYREXIA [None]
  - RENAL TRANSPLANT [None]
